FAERS Safety Report 20907035 (Version 2)
Quarter: 2022Q2

REPORT INFORMATION
  Report Type: Spontaneous
  Country: US (occurrence: US)
  Receive Date: 20220602
  Receipt Date: 20220607
  Transmission Date: 20220721
  Serious: Yes (Other)
  Sender: FDA-Public Use
  Company Number: US-AMGEN-USASP2022088627

PATIENT
  Age: 78 Year
  Sex: Female

DRUGS (3)
  1. PROLIA [Suspect]
     Active Substance: DENOSUMAB
     Indication: Osteoporosis postmenopausal
     Dosage: 60 MILLIGRAM PER MILLILITER
     Route: 065
  2. PROLIA [Suspect]
     Active Substance: DENOSUMAB
     Dosage: 60 MILLIGRAM PER MILLILITER
     Route: 065
  3. PROLIA [Suspect]
     Active Substance: DENOSUMAB
     Dosage: 60 MILLIGRAM PER MILLILITER
     Route: 065

REACTIONS (8)
  - Loss of consciousness [Unknown]
  - Facial bones fracture [Unknown]
  - Oxygen saturation decreased [Unknown]
  - Hyperhidrosis [Unknown]
  - Joint injury [Unknown]
  - Tremor [Unknown]
  - Fall [Unknown]
  - Vomiting [Unknown]

NARRATIVE: CASE EVENT DATE: 20220301
